FAERS Safety Report 13401484 (Version 1)
Quarter: 2017Q2

REPORT INFORMATION
  Report Type: Spontaneous
  Country: SE (occurrence: SE)
  Receive Date: 20170404
  Receipt Date: 20170404
  Transmission Date: 20170830
  Serious: Yes (Other)
  Sender: FDA-Public Use
  Company Number: SE-BAYER-2017-059083

PATIENT
  Age: 26 Year
  Sex: Female
  Weight: 60 kg

DRUGS (3)
  1. JAYDESS [Suspect]
     Active Substance: LEVONORGESTREL
     Indication: CONTRACEPTION
     Dosage: 14 MCG/24HR, CONT
     Route: 015
     Dates: start: 20160425, end: 20170315
  2. AERIUS [Concomitant]
     Active Substance: DESLORATADINE
     Dates: start: 2002
  3. ASACOL [Concomitant]
     Active Substance: MESALAMINE
     Dates: start: 2010

REACTIONS (8)
  - Fatigue [Recovered/Resolved]
  - Candida infection [Recovered/Resolved]
  - Pica [Recovered/Resolved]
  - Carpal tunnel syndrome [Recovered/Resolved]
  - Dysmenorrhoea [Recovered/Resolved]
  - Galactorrhoea [Recovered/Resolved]
  - Hunger [Recovered/Resolved]
  - Mood swings [Recovered/Resolved]

NARRATIVE: CASE EVENT DATE: 201607
